FAERS Safety Report 8271459-7 (Version None)
Quarter: 2012Q2

REPORT INFORMATION
  Report Type: 
  Country: None (occurrence: None)
  Receive Date: 20120410
  Receipt Date: 20120402
  Transmission Date: 20120825
  Serious: Yes (Hospitalization)
  Sender: FDA-Public Use
  Company Number: US-INCYTE CORPORATION-2012IN000045

PATIENT
  Sex: Male

DRUGS (5)
  1. CALCIUM SUPPLEMENT [Concomitant]
  2. JAKAFI [Suspect]
     Indication: SPLENOMEGALY
     Dosage: 10 MG, BID
     Route: 048
     Dates: start: 20120105
  3. BLOOD PRESSURE MEDICATION [Concomitant]
  4. ULORIC [Concomitant]
     Dosage: 80 MG, QD
  5. DIABETIC MEDICATION [Concomitant]

REACTIONS (4)
  - RENAL FAILURE [None]
  - COORDINATION ABNORMAL [None]
  - INFECTION [None]
  - SPEECH DISORDER [None]
